FAERS Safety Report 5075899-9 (Version None)
Quarter: 2006Q3

REPORT INFORMATION
  Report Type: 
  Country: None (occurrence: None)
  Receive Date: 20060807
  Receipt Date: 20060807
  Transmission Date: 20061208
  Serious: No
  Sender: FDA-Public Use
  Company Number: None

PATIENT
  Age: 79 Year
  Sex: Male
  Weight: 86.1834 kg

DRUGS (1)
  1. LIPITOR [Suspect]
     Indication: BLOOD CHOLESTEROL INCREASED
     Dosage: 40MG   DAILY
     Dates: start: 19970501, end: 20060804

REACTIONS (15)
  - AGEUSIA [None]
  - ARRHYTHMIA [None]
  - BALANCE DISORDER [None]
  - DEAFNESS [None]
  - DEPRESSION [None]
  - DRY EYE [None]
  - DYSARTHRIA [None]
  - FACIAL PALSY [None]
  - GENERAL PHYSICAL HEALTH DETERIORATION [None]
  - HYPERGLYCAEMIA [None]
  - MULTIPLE SYSTEM ATROPHY [None]
  - NONSPECIFIC REACTION [None]
  - OXYGEN SATURATION DECREASED [None]
  - SEBORRHOEA [None]
  - SOMNOLENCE [None]
